FAERS Safety Report 7610667-2 (Version None)
Quarter: 2011Q3

REPORT INFORMATION
  Report Type: 
  Country: None (occurrence: None)
  Receive Date: 20110715
  Receipt Date: 20110704
  Transmission Date: 20111222
  Serious: Yes (Other)
  Sender: FDA-Public Use
  Company Number: US-SHIONOGI, INC-2011000116

PATIENT

DRUGS (3)
  1. ALLEGRA [Concomitant]
  2. SINGULAIR [Concomitant]
  3. EPINEPHRINE [Suspect]
     Indication: HYPERSENSITIVITY

REACTIONS (2)
  - PRODUCT QUALITY ISSUE [None]
  - DEVICE MALFUNCTION [None]
